FAERS Safety Report 15246462 (Version 1)
Quarter: 2018Q3

REPORT INFORMATION
  Report Type: Spontaneous
  Country: US (occurrence: US)
  Receive Date: 20180806
  Receipt Date: 20180806
  Transmission Date: 20181010
  Serious: Yes (Hospitalization, Other)
  Sender: FDA-Public Use
  Company Number: US-ASTELLAS-2018US035065

PATIENT
  Age: 47 Year
  Sex: Female

DRUGS (17)
  1. TACROLIMUS. [Interacting]
     Active Substance: TACROLIMUS
     Dosage: 1.5 MG EVERY MORNING AND 1 MG EVERY EVENING
     Route: 048
  2. TACROLIMUS. [Interacting]
     Active Substance: TACROLIMUS
     Route: 048
  3. TACROLIMUS. [Interacting]
     Active Substance: TACROLIMUS
     Dosage: 3 MG EVERY MORNING AND 2.5 MG EVERY EVENING
     Route: 048
  4. MICAFUNGIN [Suspect]
     Active Substance: MICAFUNGIN
     Indication: ANTIFUNGAL PROPHYLAXIS
     Dosage: UNK, UNKNOWN FREQ.
     Route: 065
  5. ZOLPIDEM TARTRATE. [Suspect]
     Active Substance: ZOLPIDEM TARTRATE
     Indication: PRODUCT USED FOR UNKNOWN INDICATION
     Dosage: UNK, UNKNOWN FREQ.
     Route: 065
  6. TACROLIMUS. [Interacting]
     Active Substance: TACROLIMUS
     Route: 048
  7. TACROLIMUS. [Interacting]
     Active Substance: TACROLIMUS
     Route: 048
  8. ISAVUCONAZOLE [Suspect]
     Active Substance: ISAVUCONAZOLE
     Indication: ANTIFUNGAL PROPHYLAXIS
     Dosage: UNK, UNKNOWN FREQ.
     Route: 048
  9. CEFDINIR. [Suspect]
     Active Substance: CEFDINIR
     Indication: PRODUCT USED FOR UNKNOWN INDICATION
     Dosage: UNK, UNKNOWN FREQ.
     Route: 065
  10. POSACONAZOLE [Suspect]
     Active Substance: POSACONAZOLE
     Indication: ANTIFUNGAL PROPHYLAXIS
     Dosage: UNK, UNKNOWN FREQ.
     Route: 065
  11. TACROLIMUS. [Interacting]
     Active Substance: TACROLIMUS
     Indication: STEM CELL TRANSPLANT
     Dosage: 0.03 MG/KG, EVERY 12 HOURS
     Route: 048
  12. MYCOPHENOLATE MOFETIL. [Concomitant]
     Active Substance: MYCOPHENOLATE MOFETIL
     Indication: PRODUCT USED FOR UNKNOWN INDICATION
     Route: 048
  13. LEVOFLOXACIN. [Suspect]
     Active Substance: LEVOFLOXACIN
     Indication: PRODUCT USED FOR UNKNOWN INDICATION
     Route: 048
  14. TRIMETHOPRIM SULFAMETHOXAZOLE [Concomitant]
     Active Substance: SULFAMETHOXAZOLE\TRIMETHOPRIM
     Indication: PRODUCT USED FOR UNKNOWN INDICATION
     Dosage: 160 TO 800 MG, TWICE DAILY
     Route: 048
  15. AMLODIPINE [Concomitant]
     Active Substance: AMLODIPINE BESYLATE
     Indication: PRODUCT USED FOR UNKNOWN INDICATION
     Route: 048
  16. AMITRIPTYLINE [Suspect]
     Active Substance: AMITRIPTYLINE
     Indication: PRODUCT USED FOR UNKNOWN INDICATION
     Dosage: 50 MG, ONCE DAILY (NIGHTLY)
     Route: 048
  17. ONDANSETRON [Suspect]
     Active Substance: ONDANSETRON
     Indication: NAUSEA
     Route: 048

REACTIONS (4)
  - Electrocardiogram QT prolonged [Recovering/Resolving]
  - Drug interaction [Unknown]
  - Product use in unapproved indication [Unknown]
  - Immunosuppressant drug level decreased [Unknown]
